FAERS Safety Report 8321767-6 (Version None)
Quarter: 2012Q2

REPORT INFORMATION
  Report Type: 
  Country: None (occurrence: None)
  Receive Date: 20120426
  Receipt Date: 20120410
  Transmission Date: 20120825
  Serious: Yes (Life-Threatening, Hospitalization)
  Sender: FDA-Public Use
  Company Number: VAL_00753_2012

PATIENT
  Sex: Female

DRUGS (1)
  1. ROCALTROL [Suspect]
     Indication: HYPERPARATHYROIDISM SECONDARY
     Dosage: (DF ORAL)
     Route: 048

REACTIONS (2)
  - CARDIAC FAILURE [None]
  - EOSINOPHIL COUNT INCREASED [None]
